FAERS Safety Report 17580535 (Version 4)
Quarter: 2021Q2

REPORT INFORMATION
  Report Type: Report from Study
  Country: US (occurrence: US)
  Receive Date: 20200325
  Receipt Date: 20210507
  Transmission Date: 20210716
  Serious: Yes (Other)
  Sender: FDA-Public Use
  Company Number: NVSC2020US083707

PATIENT
  Age: 63 Year
  Sex: Male

DRUGS (1)
  1. ENTRESTO [Suspect]
     Active Substance: SACUBITRIL\VALSARTAN
     Indication: CARDIAC FAILURE
     Dosage: 200 MG, UNKNOWN
     Route: 065
     Dates: start: 20170409

REACTIONS (3)
  - Cardiac dysfunction [Unknown]
  - Renal impairment [Unknown]
  - Weight decreased [Unknown]

NARRATIVE: CASE EVENT DATE: 20210416
